FAERS Safety Report 11575274 (Version 1)
Quarter: 2015Q3

REPORT INFORMATION
  Report Type: Spontaneous
  Country: US (occurrence: US)
  Receive Date: 20150916
  Receipt Date: 20150916
  Transmission Date: 20151125
  Serious: No
  Sender: FDA-Public Use
  Company Number: US-ELI_LILLY_AND_COMPANY-US200911005821

PATIENT
  Sex: Female

DRUGS (1)
  1. FORTEO [Suspect]
     Active Substance: TERIPARATIDE
     Dosage: 20 UG, DAILY (1/D)

REACTIONS (13)
  - Blister [Unknown]
  - Peripheral swelling [Unknown]
  - Asthenia [Unknown]
  - Nausea [Unknown]
  - Nasopharyngitis [Unknown]
  - Sneezing [Unknown]
  - Sinus congestion [Unknown]
  - Dizziness [Unknown]
  - Cough [Unknown]
  - Tongue disorder [Unknown]
  - Gingival bleeding [Unknown]
  - Weight increased [Unknown]
  - Constipation [Unknown]
